FAERS Safety Report 5513726-3 (Version None)
Quarter: 2007Q4

REPORT INFORMATION
  Report Type: 
  Country: None (occurrence: None)
  Receive Date: 20071113
  Receipt Date: 20071109
  Transmission Date: 20080405
  Serious: Yes (Death)
  Sender: FDA-Public Use
  Company Number: PHEH2007US13069

PATIENT
  Age: 13 Year
  Sex: Male

DRUGS (2)
  1. EXJADE [Suspect]
     Indication: BRAIN NEOPLASM MALIGNANT
     Dosage: 500 MG, QD
     Route: 048
     Dates: start: 20060829, end: 20070911
  2. CHEMOTHERAPEUTICS,OTHER [Concomitant]

REACTIONS (1)
  - NEUROBLASTOMA [None]
